FAERS Safety Report 12914173 (Version 3)
Quarter: 2016Q4

REPORT INFORMATION
  Report Type: Report from Study
  Country: CO (occurrence: CO)
  Receive Date: 20161106
  Receipt Date: 20161115
  Transmission Date: 20170207
  Serious: Yes (Hospitalization)
  Sender: FDA-Public Use
  Company Number: US-ASTRAZENECA-2016SF14205

PATIENT
  Age: 330 Day
  Sex: Female
  Weight: 6 kg

DRUGS (1)
  1. SYNAGIS [Suspect]
     Active Substance: PALIVIZUMAB
     Indication: HEART DISEASE CONGENITAL
     Route: 030
     Dates: start: 20160114, end: 20160922

REACTIONS (2)
  - Dyspnoea [Not Recovered/Not Resolved]
  - Stridor [Not Recovered/Not Resolved]

NARRATIVE: CASE EVENT DATE: 20161026
